FAERS Safety Report 19702953 (Version 14)
Quarter: 2022Q3

REPORT INFORMATION
  Report Type: Spontaneous
  Country: US (occurrence: US)
  Receive Date: 20210816
  Receipt Date: 20220921
  Transmission Date: 20221026
  Serious: No
  Sender: FDA-Public Use
  Company Number: US-GLAXOSMITHKLINE-US2021169064

PATIENT
  Age: 75 Year
  Sex: Female
  Weight: 79 kg

DRUGS (9)
  1. ZEJULA [Suspect]
     Active Substance: NIRAPARIB
     Indication: Ovarian cancer
     Dosage: 200 MG, QD, QPM
     Route: 048
     Dates: start: 20210714
  2. ZEJULA [Suspect]
     Active Substance: NIRAPARIB
     Dosage: 200 MG, QD
     Route: 048
  3. ZEJULA [Suspect]
     Active Substance: NIRAPARIB
     Dosage: 200 MG, QD
     Route: 048
  4. ZEJULA [Suspect]
     Active Substance: NIRAPARIB
     Dosage: 200 MG, QD
     Route: 048
  5. ZEJULA [Suspect]
     Active Substance: NIRAPARIB
     Dosage: 200 MG, QD
     Route: 048
  6. ZEJULA [Suspect]
     Active Substance: NIRAPARIB
     Dosage: 200 MG, QD
     Route: 048
  7. ZEJULA [Suspect]
     Active Substance: NIRAPARIB
     Dosage: 200 MG, QD
     Route: 048
  8. BIOTIN [Concomitant]
     Active Substance: BIOTIN
     Indication: Hair growth abnormal
     Dosage: UNK
  9. DOXYCYCLINE [Concomitant]
     Active Substance: DOXYCYCLINE
     Indication: Product used for unknown indication
     Dosage: 100 MG, QD

REACTIONS (20)
  - Urinary tract infection [Recovered/Resolved]
  - Blood pressure increased [Unknown]
  - Back pain [Unknown]
  - Nail disorder [Unknown]
  - Illness [Unknown]
  - Influenza [Unknown]
  - Vomiting [Unknown]
  - Memory impairment [Unknown]
  - Condition aggravated [Unknown]
  - Stress [Unknown]
  - Blood creatinine increased [Unknown]
  - Monocyte count increased [Unknown]
  - Dry mouth [Unknown]
  - Headache [Unknown]
  - Nail growth abnormal [Unknown]
  - Arthropathy [Unknown]
  - Exercise tolerance decreased [Unknown]
  - Gait inability [Unknown]
  - Product use complaint [Unknown]
  - Product dose omission issue [Unknown]

NARRATIVE: CASE EVENT DATE: 20210806
